FAERS Safety Report 18374932 (Version 2)
Quarter: 2020Q4

REPORT INFORMATION
  Report Type: Spontaneous
  Country: IT (occurrence: IT)
  Receive Date: 20201013
  Receipt Date: 20201128
  Transmission Date: 20210114
  Serious: Yes (Other)
  Sender: FDA-Public Use
  Company Number: IT-009507513-2010ITA001938

PATIENT
  Age: 73 Year
  Sex: Male

DRUGS (3)
  1. CARBOPLATIN. [Suspect]
     Active Substance: CARBOPLATIN
     Indication: ADENOSQUAMOUS CELL LUNG CANCER
     Dosage: 420 MILLIGRAM, CYCLICAL, STRENGTH: 10 MG/ML
     Route: 042
     Dates: start: 20200804, end: 20200817
  2. ALIMTA [Suspect]
     Active Substance: PEMETREXED DISODIUM
     Indication: ADENOSQUAMOUS CELL LUNG CANCER
     Dosage: 684 MILLIGRAM, CYCLICAL
     Route: 042
     Dates: start: 20200804, end: 20200817
  3. KEYTRUDA [Suspect]
     Active Substance: PEMBROLIZUMAB
     Indication: ADENOSQUAMOUS CELL LUNG CANCER
     Dosage: 200 MILLIGRAM, CYCLICAL
     Route: 042
     Dates: start: 20200804, end: 20200817

REACTIONS (1)
  - Thrombocytopenia [Recovered/Resolved]

NARRATIVE: CASE EVENT DATE: 20200823
